FAERS Safety Report 5042294-8 (Version None)
Quarter: 2006Q2

REPORT INFORMATION
  Report Type: 
  Country: None (occurrence: None)
  Receive Date: 20060627
  Receipt Date: 20060609
  Transmission Date: 20061013
  Serious: Yes (Hospitalization)
  Sender: FDA-Public Use
  Company Number: DSA_28310_2006

PATIENT
  Age: 75 Year
  Sex: Female

DRUGS (5)
  1. CARDIZEM CD [Suspect]
     Indication: HYPERTENSION
     Dosage: 240 MG Q DAY PO
     Route: 048
     Dates: start: 20010101, end: 20030101
  2. CARDIZEM CD [Suspect]
     Indication: HYPERTENSION
     Dosage: 120 MG Q DAY PO
     Route: 048
     Dates: start: 20060301
  3. COZAAR [Suspect]
     Indication: HYPERTENSION
     Dosage: 100 MG Q DAY PO
     Route: 048
  4. BENICAR [Suspect]
     Indication: HYPERTENSION
     Dosage: 40 MG Q DAY PO
     Route: 048
  5. METHIMAZOLE [Concomitant]

REACTIONS (4)
  - BLOOD PRESSURE FLUCTUATION [None]
  - DEPRESSION [None]
  - GINGIVAL SWELLING [None]
  - HYPERTHYROIDISM [None]
